FAERS Safety Report 25230936 (Version 1)
Quarter: 2025Q2

REPORT INFORMATION
  Report Type: Spontaneous
  Country: AU (occurrence: AU)
  Receive Date: 20250423
  Receipt Date: 20250423
  Transmission Date: 20250716
  Serious: Yes (Other)
  Sender: SANDOZ
  Company Number: None

PATIENT
  Age: 23 Year
  Sex: Male

DRUGS (16)
  1. ACETAMINOPHEN\CODEINE PHOSPHATE [Suspect]
     Active Substance: ACETAMINOPHEN\CODEINE PHOSPHATE
     Indication: Product used for unknown indication
     Route: 065
  2. DIHYDROCODEINE [Suspect]
     Active Substance: DIHYDROCODEINE
     Indication: Antitussive therapy
     Dosage: IN THE PREVIOUS TWO YEARS.
     Route: 065
  3. DIHYDROCODEINE BITARTRATE [Suspect]
     Active Substance: DIHYDROCODEINE BITARTRATE
     Indication: Product used for unknown indication
     Route: 065
  4. METHADONE HYDROCHLORIDE [Suspect]
     Active Substance: METHADONE HYDROCHLORIDE
     Indication: Product used for unknown indication
     Dosage: INTERVAL: 1 DAY
     Route: 065
  5. OXYCODONE [Suspect]
     Active Substance: OXYCODONE
     Indication: Product used for unknown indication
     Dosage: INTERVAL: 1 DAY
     Route: 065
  6. OXYCODONE [Suspect]
     Active Substance: OXYCODONE
     Route: 065
  7. TRAMADOL HYDROCHLORIDE [Suspect]
     Active Substance: TRAMADOL HYDROCHLORIDE
     Indication: Product used for unknown indication
     Dosage: INTERVAL: 1 DAY
     Route: 065
  8. BUPRENORPHINE [Concomitant]
     Active Substance: BUPRENORPHINE
     Route: 065
  9. BUPRENORPHINE [Concomitant]
     Active Substance: BUPRENORPHINE
     Indication: Product used for unknown indication
     Route: 060
  10. CANNABIS SATIVA FLOWERING TOP [Concomitant]
     Active Substance: CANNABIS SATIVA FLOWERING TOP
     Indication: Product used for unknown indication
     Dosage: INTERVAL: 1 DAY
     Route: 065
  11. DIAZEPAM [Concomitant]
     Active Substance: DIAZEPAM
     Dosage: 30 MG, INTERVAL: 1 DAY
     Route: 065
  12. DIAZEPAM [Concomitant]
     Active Substance: DIAZEPAM
     Indication: Product used for unknown indication
     Dosage: INTERVAL: 1 DAY
     Route: 065
  13. LOPERAMIDE [Concomitant]
     Active Substance: LOPERAMIDE
     Indication: Prophylaxis against diarrhoea
     Route: 065
  14. PREGABALIN [Concomitant]
     Active Substance: PREGABALIN
     Indication: Product used for unknown indication
     Route: 065
  15. PROMETHAZINE [Concomitant]
     Active Substance: PROMETHAZINE HYDROCHLORIDE
     Indication: Antitussive therapy
     Route: 065
  16. PROMETHAZINE HYDROCHLORIDE [Concomitant]
     Active Substance: PROMETHAZINE HYDROCHLORIDE
     Indication: Product used for unknown indication
     Route: 065

REACTIONS (3)
  - Drug use disorder [Recovered/Resolved]
  - Drug dependence [Recovered/Resolved]
  - Intentional product misuse [Recovered/Resolved]
